FAERS Safety Report 5580127-1 (Version None)
Quarter: 2007Q4

REPORT INFORMATION
  Report Type: 
  Country: None (occurrence: None)
  Receive Date: 20071227
  Receipt Date: 20071227
  Transmission Date: 20080405
  Serious: Yes (Other)
  Sender: FDA-Public Use
  Company Number: None

PATIENT
  Age: 49 Year
  Sex: Male
  Weight: 113.3993 kg

DRUGS (1)
  1. MEVACOR [Suspect]
     Indication: BLOOD CHOLESTEROL
     Dates: start: 20041201, end: 20070401

REACTIONS (7)
  - BEDRIDDEN [None]
  - ECONOMIC PROBLEM [None]
  - FALL [None]
  - ILL-DEFINED DISORDER [None]
  - MUSCLE CONTRACTIONS INVOLUNTARY [None]
  - NEUROPATHY [None]
  - PARAESTHESIA [None]
